FAERS Safety Report 5403940-X (Version None)
Quarter: 2007Q3

REPORT INFORMATION
  Report Type: 
  Country: None (occurrence: None)
  Receive Date: 20070802
  Receipt Date: 20070802
  Transmission Date: 20080115
  Serious: Yes (Death, Other)
  Sender: FDA-Public Use
  Company Number: IE-BAYER-200714385GDS

PATIENT
  Age: 46 Year
  Sex: Male

DRUGS (3)
  1. APROTININ [Suspect]
     Indication: LIVER TRANSPLANT
     Route: 042
  2. APROTININ [Suspect]
     Route: 042
  3. OCTAPLAS [Concomitant]
     Dosage: UNIT DOSE: 200 ML
     Route: 065

REACTIONS (4)
  - ANAPHYLACTIC REACTION [None]
  - FIBRINOLYSIS ABNORMAL [None]
  - HYPOTENSION [None]
  - TACHYCARDIA [None]
